FAERS Safety Report 5610647-2 (Version None)
Quarter: 2008Q1

REPORT INFORMATION
  Report Type: 
  Country: None (occurrence: None)
  Receive Date: 20080131
  Receipt Date: 20080131
  Transmission Date: 20080703
  Serious: No
  Sender: FDA-Public Use
  Company Number: None

PATIENT
  Age: 78 Year
  Sex: Female

DRUGS (2)
  1. CELEXA [Suspect]
     Dosage: TABLET
  2. CELEBREX [Suspect]
     Dosage: CAPSULE

REACTIONS (1)
  - MEDICATION ERROR [None]
